FAERS Safety Report 16214316 (Version 1)
Quarter: 2019Q2

REPORT INFORMATION
  Report Type: Spontaneous
  Country: CN (occurrence: CN)
  Receive Date: 20190418
  Receipt Date: 20190418
  Transmission Date: 20190711
  Serious: Yes (Other)
  Sender: FDA-Public Use
  Company Number: CN-PFIZER INC-2019162504

PATIENT
  Age: 82 Year
  Sex: Female
  Weight: 65 kg

DRUGS (2)
  1. VFEND [Suspect]
     Active Substance: VORICONAZOLE
     Indication: FUNGAL INFECTION
     Dosage: 200 MG, 2X/DAY
     Route: 048
     Dates: start: 20190325, end: 20190403
  2. LIPITOR [Interacting]
     Active Substance: ATORVASTATIN CALCIUM
     Indication: EVIDENCE BASED TREATMENT
     Dosage: 20 MG, 1X/DAY
     Route: 048
     Dates: start: 20190325, end: 20190402

REACTIONS (2)
  - Drug interaction [Not Recovered/Not Resolved]
  - Cholestatic liver injury [Not Recovered/Not Resolved]

NARRATIVE: CASE EVENT DATE: 20190330
